FAERS Safety Report 9641308 (Version 1)
Quarter: 2013Q4

REPORT INFORMATION
  Report Type: Spontaneous
  Country: US (occurrence: None)
  Receive Date: 20131022
  Receipt Date: 20131022
  Transmission Date: 20140711
  Serious: Yes (Hospitalization)
  Sender: FDA-Public Use
  Company Number: None

PATIENT
  Sex: 0

DRUGS (1)
  1. CREST PRO HEALTH COMPLETE MOUTH WASH [Suspect]
     Dates: start: 20130830, end: 20130903

REACTIONS (7)
  - Glossodynia [None]
  - Hypoaesthesia oral [None]
  - Paraesthesia oral [None]
  - Gingival blister [None]
  - Ageusia [None]
  - Tooth discolouration [None]
  - Gingival pain [None]
